FAERS Safety Report 9178710 (Version 2)
Quarter: 2013Q2

REPORT INFORMATION
  Report Type: Spontaneous
  Country: US (occurrence: US)
  Receive Date: 20130321
  Receipt Date: 20130524
  Transmission Date: 20140414
  Serious: Yes (Life-Threatening, Hospitalization)
  Sender: FDA-Public Use
  Company Number: US-ELI_LILLY_AND_COMPANY-US201303005190

PATIENT
  Age: 51 Year
  Sex: 0
  Weight: 86 kg

DRUGS (6)
  1. LISPRO [Suspect]
  2. INSULIN ASPART [Concomitant]
  3. INSULIN GLARGINE [Concomitant]
  4. AMLODIPINE [Concomitant]
     Route: 048
  5. LISINOPRIL [Concomitant]
     Dosage: 10 MG, QD
  6. ASPIRIN [Concomitant]

REACTIONS (6)
  - Suicide attempt [Recovered/Resolved]
  - Hypoglycaemia [Recovered/Resolved]
  - Intentional overdose [Recovered/Resolved]
  - Intentional drug misuse [Recovered/Resolved]
  - Depression [None]
  - Asthenia [None]
